FAERS Safety Report 15602777 (Version 1)
Quarter: 2018Q4

REPORT INFORMATION
  Report Type: Spontaneous
  Country: US (occurrence: US)
  Receive Date: 20181109
  Receipt Date: 20181109
  Transmission Date: 20190205
  Serious: Yes (Other)
  Sender: FDA-Public Use
  Company Number: US-APOTEX-2018AP024145

PATIENT
  Age: 32 Year
  Sex: Male

DRUGS (3)
  1. TIMOLOL. [Concomitant]
     Active Substance: TIMOLOL
     Indication: ANGIOLYMPHOID HYPERPLASIA WITH EOSINOPHILIA
  2. MYCOPHENOLATE [Suspect]
     Active Substance: MYCOPHENOLIC ACID
     Indication: ANGIOLYMPHOID HYPERPLASIA WITH EOSINOPHILIA
     Dosage: 1000 MG, BID
     Route: 065
  3. MYCOPHENOLATE [Suspect]
     Active Substance: MYCOPHENOLIC ACID
     Dosage: 1000 MG, QD
     Route: 065

REACTIONS (1)
  - Neutropenia [Recovered/Resolved]
